FAERS Safety Report 20157041 (Version 5)
Quarter: 2023Q1

REPORT INFORMATION
  Report Type: Spontaneous
  Country: FR (occurrence: FR)
  Receive Date: 20211207
  Receipt Date: 20230314
  Transmission Date: 20230418
  Serious: Yes (Hospitalization)
  Sender: FDA-Public Use
  Company Number: None

PATIENT
  Age: 55 Year
  Sex: Female
  Weight: 52 kg

DRUGS (6)
  1. TOCILIZUMAB [Suspect]
     Active Substance: TOCILIZUMAB
     Indication: Rheumatoid arthritis
     Route: 042
     Dates: start: 20210415, end: 202105
  2. PREDNISOLONE SODIUM METAZOATE [Concomitant]
     Active Substance: PREDNISOLONE SODIUM METAZOATE
  3. LEVOTHYROXINE [Concomitant]
     Active Substance: LEVOTHYROXINE
  4. ENBREL [Concomitant]
     Active Substance: ETANERCEPT
     Route: 042
  5. ENBREL [Concomitant]
     Active Substance: ETANERCEPT
     Route: 042
  6. ARAVA [Concomitant]
     Active Substance: LEFLUNOMIDE

REACTIONS (14)
  - Faecal vomiting [Recovered/Resolved]
  - Hypokalaemia [Recovered/Resolved]
  - Vomiting [Recovered/Resolved]
  - Salivary hypersecretion [Unknown]
  - Throat irritation [Unknown]
  - Oesophageal irritation [Unknown]
  - Oropharyngeal pain [Unknown]
  - Oesophageal pain [Unknown]
  - Abdominal pain upper [Unknown]
  - Throat irritation [Unknown]
  - Oesophageal pain [Unknown]
  - Dyspepsia [Unknown]
  - Epigastric discomfort [Unknown]
  - Weight decreased [Unknown]

NARRATIVE: CASE EVENT DATE: 20210501
